FAERS Safety Report 10507190 (Version 2)
Quarter: 2014Q4

REPORT INFORMATION
  Report Type: Spontaneous
  Country: CO (occurrence: CO)
  Receive Date: 20141009
  Receipt Date: 20141121
  Transmission Date: 20150528
  Serious: Yes (Other)
  Sender: FDA-Public Use
  Company Number: CO-PFIZER INC-2014277613

PATIENT
  Age: 69 Year
  Sex: Female

DRUGS (13)
  1. EPAMIN [Suspect]
     Active Substance: PHENYTOIN SODIUM
     Dosage: 100 MG, 3X/DAY
     Route: 048
     Dates: start: 20020522, end: 20020902
  2. EPAMIN [Suspect]
     Active Substance: PHENYTOIN SODIUM
     Indication: SEIZURE
     Dosage: 100 MG, 3X/DAY
     Route: 048
     Dates: start: 20020223, end: 20020310
  3. EPAMIN [Suspect]
     Active Substance: PHENYTOIN SODIUM
     Indication: CEREBROVASCULAR ACCIDENT
     Dosage: 100 MG, 4X/DAY
     Route: 048
     Dates: start: 20020311, end: 20020410
  4. EPAMIN [Suspect]
     Active Substance: PHENYTOIN SODIUM
     Dosage: 100 MG, 5X/DAY
     Route: 048
     Dates: start: 20020411, end: 20020521
  5. EPAMIN [Suspect]
     Active Substance: PHENYTOIN SODIUM
     Dosage: 100 UNKNOWN UNIT
     Route: 048
     Dates: start: 20050802, end: 2014
  6. INDERAL [Concomitant]
     Active Substance: PROPRANOLOL HYDROCHLORIDE
     Dosage: 40 MG, DAILY
  7. ZOLPIDEM [Concomitant]
     Active Substance: ZOLPIDEM\ZOLPIDEM TARTRATE
     Dosage: 10 MG, DAILY
  8. ASPERCREME NOS [Concomitant]
     Active Substance: MENTHOL\TROLAMINE SALICYLATE
     Indication: BACK PAIN
  9. ATORVASTATIN [Concomitant]
     Active Substance: ATORVASTATIN
     Dosage: 20 MG, DAILY
  10. HYDROCHLOROTHIAZIDE. [Concomitant]
     Active Substance: HYDROCHLOROTHIAZIDE
     Dosage: 25 MG, DAILY
  11. ZOLEDRONIC ACID [Concomitant]
     Active Substance: ZOLEDRONIC ACID
     Indication: OSTEOPOROSIS
  12. EUTIROX [Concomitant]
     Active Substance: LEVOTHYROXINE SODIUM
     Dosage: 125 MCG, DAILY
  13. EPAMIN [Suspect]
     Active Substance: PHENYTOIN SODIUM
     Dosage: 100 MG, 3X/DAY
     Route: 048
     Dates: start: 20040121, end: 2005

REACTIONS (1)
  - Diabetes mellitus [Not Recovered/Not Resolved]

NARRATIVE: CASE EVENT DATE: 201002
